FAERS Safety Report 9294955 (Version 4)
Quarter: 2013Q3

REPORT INFORMATION
  Report Type: Report from Study
  Country: US (occurrence: US)
  Receive Date: 20130517
  Receipt Date: 20130920
  Transmission Date: 20140515
  Serious: Yes (Hospitalization, Other)
  Sender: FDA-Public Use
  Company Number: US-BRISTOL-MYERS SQUIBB COMPANY-18890848

PATIENT
  Sex: Male

DRUGS (20)
  1. IPILIMUMAB [Suspect]
     Indication: METASTATIC MALIGNANT MELANOMA
     Dosage: COURSE 4;228MG DAY1
     Route: 042
     Dates: start: 20130422, end: 20130422
  2. CISPLATIN [Suspect]
     Indication: METASTATIC MALIGNANT MELANOMA
     Dosage: DAYS 1 - 3?COURSE 4; 29MG 2DAYS
     Route: 042
     Dates: end: 20130425
  3. INTERFERON ALFA-2B [Suspect]
     Indication: METASTATIC MALIGNANT MELANOMA
     Dosage: 10 MIL UNITS; DAYS 1 - 5
     Route: 058
     Dates: end: 20130427
  4. ALDESLEUKIN [Suspect]
     Indication: METASTATIC MALIGNANT MELANOMA
     Dosage: 18 MIL UNITS; DAYS 1 - 4?14 MIL UNITS FOR 3 DAYS
     Route: 042
     Dates: end: 20130426
  5. TEMOZOLOMIDE [Suspect]
     Indication: METASTATIC MALIGNANT MELANOMA
     Dosage: DAYS 1 - 4?395MG 4DAYS
     Route: 048
     Dates: end: 20130426
  6. ATARAX [Concomitant]
     Dosage: 1 DF:12CAPS?STR:25MG
     Route: 048
  7. DOXEPIN [Concomitant]
     Dosage: 1DF:1 CAPS?STR:10MG
     Route: 048
  8. IMITREX [Concomitant]
     Indication: MIGRAINE
     Dosage: 1DF:1 TAB?DAILY AS NEEDED?STR:50MG
     Route: 048
  9. LASIX [Concomitant]
     Dosage: 1DF:1 TAB?40MG.ONLY START IF WT INCREASES
     Route: 048
  10. IMODIUM [Concomitant]
     Indication: DIARRHOEA
     Dosage: 1 DF:2 TABS?STR:2MG.
     Route: 048
  11. IMODIUM [Concomitant]
     Indication: DIARRHOEA
     Dosage: 1 DF:2 TABS?STR:2MG.
     Route: 048
  12. MAGNESIUM [Concomitant]
     Indication: MINERAL SUPPLEMENTATION
     Dosage: 1DF:1 TAB?STR:133MG?MAGNESIUM PROTEIN COMPLEX
     Route: 048
  13. MINOCYCLINE [Concomitant]
     Dosage: 1DF:1 TAB?STR:100MG
     Route: 048
  14. POTASSIUM CHLORIDE [Concomitant]
     Dosage: STR:10MEQ
     Route: 048
  15. COMPAZINE [Concomitant]
     Indication: VOMITING
     Dosage: 1 TAB
     Route: 048
  16. COMPAZINE [Concomitant]
     Indication: NAUSEA
     Dosage: 1 TAB
     Route: 048
  17. PRILOSEC [Concomitant]
     Dosage: 1DF:1TAB
     Route: 048
  18. RESTORIL [Concomitant]
     Indication: SLEEP DISORDER
     Dosage: 1DF:1-2TAB.?STR:15MG
     Route: 048
  19. ZOFRAN [Concomitant]
     Indication: NAUSEA
     Route: 048
  20. ZOFRAN [Concomitant]
     Indication: VOMITING
     Route: 048

REACTIONS (9)
  - Pyrexia [Not Recovered/Not Resolved]
  - Influenza like illness [Unknown]
  - Medical device complication [Unknown]
  - Deep vein thrombosis [Unknown]
  - Hypomagnesaemia [Unknown]
  - Chills [Recovered/Resolved]
  - Dermatitis bullous [Unknown]
  - Pneumonia [Unknown]
  - Staphylococcal infection [Unknown]
